FAERS Safety Report 16345809 (Version 1)
Quarter: 2019Q2

REPORT INFORMATION
  Report Type: Spontaneous
  Country: AU (occurrence: AU)
  Receive Date: 20190523
  Receipt Date: 20190523
  Transmission Date: 20190711
  Serious: Yes (Other)
  Sender: FDA-Public Use
  Company Number: AU-BRISTOL-MYERS SQUIBB COMPANY-BMS-2019-048726

PATIENT
  Age: 13 Year
  Sex: Male

DRUGS (12)
  1. DEXAMETHASONE SODIUM PHOSPHATE. [Suspect]
     Active Substance: DEXAMETHASONE SODIUM PHOSPHATE
     Indication: ALK GENE REARRANGEMENT POSITIVE
     Dosage: 10 MILLIGRAM/SQ. METER, INTERVAL: 1 CYCLICAL
     Route: 065
  2. ETOPOPHOS [Suspect]
     Active Substance: ETOPOSIDE PHOSPHATE
     Indication: ALK GENE REARRANGEMENT POSITIVE
     Dosage: 100 MILLIGRAM/SQ. METER, INTERVAL: 1 CYCLICAL
     Route: 065
  3. METHOTREXATE. [Suspect]
     Active Substance: METHOTREXATE
     Indication: ANAPLASTIC LARGE CELL LYMPHOMA T- AND NULL-CELL TYPES STAGE I
     Route: 065
  4. IFOSFAMIDE. [Suspect]
     Active Substance: IFOSFAMIDE
     Indication: ALK GENE REARRANGEMENT POSITIVE
     Dosage: 800 MILLIGRAM/SQ. METER, INTERVAL: 1 CYCLICAL
     Route: 065
  5. DEXAMETHASONE SODIUM PHOSPHATE. [Suspect]
     Active Substance: DEXAMETHASONE SODIUM PHOSPHATE
     Indication: ANAPLASTIC LARGE CELL LYMPHOMA T- AND NULL-CELL TYPES STAGE I
     Dosage: 5 MILLIGRAM/SQ. METER, INTERVAL: 1 CYCLICAL
     Route: 065
  6. CYCLOPHOSPHAMIDE. [Suspect]
     Active Substance: CYCLOPHOSPHAMIDE
     Indication: ALK GENE REARRANGEMENT POSITIVE
     Route: 065
  7. METHOTREXATE. [Suspect]
     Active Substance: METHOTREXATE
     Indication: ALK GENE REARRANGEMENT POSITIVE
     Dosage: 12 MILLIGRAM, INTERVAL: 1 CYCLICAL
     Route: 037
  8. CYTARABINE. [Suspect]
     Active Substance: CYTARABINE
     Indication: ALK GENE REARRANGEMENT POSITIVE
     Dosage: 30 MILLIGRAM, INTERVAL: 1 CYCLICAL
     Route: 037
  9. HYDROCORTISONE. [Suspect]
     Active Substance: HYDROCORTISONE
     Indication: ALK GENE REARRANGEMENT POSITIVE
     Dosage: 15 MILLIGRAM, INTERVAL: 1 CYCLICAL
     Route: 037
  10. DOXORUBICIN HYDROCHLORIDE. [Suspect]
     Active Substance: DOXORUBICIN HYDROCHLORIDE
     Indication: ALK GENE REARRANGEMENT POSITIVE
     Dosage: 25 MILLIGRAM/SQ. METER, INTERVAL: 1 CYCLICAL
     Route: 065
  11. CYCLOPHOSPHAMIDE. [Suspect]
     Active Substance: CYCLOPHOSPHAMIDE
     Indication: ANAPLASTIC LARGE CELL LYMPHOMA T- AND NULL-CELL TYPES STAGE I
     Dosage: 200 MILLIGRAM/SQ. METER, INTERVAL: 1 CYCLICAL
     Route: 065
  12. CYTARABINE. [Suspect]
     Active Substance: CYTARABINE
     Indication: ANAPLASTIC LARGE CELL LYMPHOMA T- AND NULL-CELL TYPES STAGE I
     Dosage: 150 MILLIGRAM/SQ. METER, INTERVAL: 1 CYCLICAL
     Route: 065

REACTIONS (2)
  - Duodenal ulcer [Recovered/Resolved]
  - Incorrect route of product administration [Unknown]
